FAERS Safety Report 10557885 (Version 4)
Quarter: 2014Q4

REPORT INFORMATION
  Report Type: Spontaneous
  Country: DE (occurrence: DE)
  Receive Date: 20141031
  Receipt Date: 20141209
  Transmission Date: 20150529
  Serious: Yes (Other)
  Sender: FDA-Public Use
  Company Number: DE-JNJFOC-20141017186

PATIENT
  Age: 59 Year
  Sex: Female

DRUGS (2)
  1. REGAINE FRAUEN [Suspect]
     Active Substance: MINOXIDIL
     Indication: ALOPECIA
     Route: 061
     Dates: start: 20141025, end: 20141026
  2. REGAINE FRAUEN [Suspect]
     Active Substance: MINOXIDIL
     Route: 061

REACTIONS (6)
  - Blood pressure decreased [Recovering/Resolving]
  - Dyspnoea [Unknown]
  - Swelling face [Recovering/Resolving]
  - Renal pain [Unknown]
  - Headache [Unknown]
  - Erythema [Recovering/Resolving]

NARRATIVE: CASE EVENT DATE: 20141025
